FAERS Safety Report 17216651 (Version 1)
Quarter: 2019Q4

REPORT INFORMATION
  Report Type: Report from Study
  Country: None (occurrence: AU)
  Receive Date: 20191230
  Receipt Date: 20191230
  Transmission Date: 20200122
  Serious: Yes (Hospitalization)
  Sender: FDA-Public Use
  Company Number: AU-ABBVIE-19K-008-2678425-00

PATIENT
  Age: 48 Year
  Sex: Male

DRUGS (4)
  1. HUMIRA [Suspect]
     Active Substance: ADALIMUMAB
     Indication: RHEUMATOID ARTHRITIS
     Route: 058
     Dates: start: 20171213, end: 201812
  2. HUMIRA [Suspect]
     Active Substance: ADALIMUMAB
     Route: 058
     Dates: end: 20191106
  3. PREDNISOLONE. [Concomitant]
     Active Substance: PREDNISOLONE
     Dosage: FREQUENCY: PRN
     Route: 048
     Dates: start: 2019
  4. PREDNISOLONE. [Concomitant]
     Active Substance: PREDNISOLONE
     Indication: PRODUCT USED FOR UNKNOWN INDICATION
     Dosage: FREQUENCY: PRN
     Route: 048

REACTIONS (10)
  - Diverticulitis [Recovered/Resolved]
  - Prostate infection [Recovering/Resolving]
  - Gastritis [Recovered/Resolved]
  - Fear [Unknown]
  - Cystitis [Recovering/Resolving]
  - Gastric infection [Recovering/Resolving]
  - Gastrointestinal infection [Recovering/Resolving]
  - Dry skin [Not Recovered/Not Resolved]
  - Injection site pain [Unknown]
  - Rheumatoid arthritis [Unknown]

NARRATIVE: CASE EVENT DATE: 201812
